FAERS Safety Report 14709988 (Version 1)
Quarter: 2018Q2

REPORT INFORMATION
  Report Type: Spontaneous
  Country: US (occurrence: US)
  Receive Date: 20180403
  Receipt Date: 20180403
  Transmission Date: 20180711
  Serious: No
  Sender: FDA-Public Use
  Company Number: US-009507513-1803USA012263

PATIENT
  Age: 77 Year
  Sex: Male
  Weight: 79.37 kg

DRUGS (1)
  1. BELSOMRA [Suspect]
     Active Substance: SUVOREXANT
     Indication: INSOMNIA
     Dosage: 20 MG, HS (NIGHTLY)
     Route: 048
     Dates: start: 201711

REACTIONS (3)
  - Drug administration error [Unknown]
  - Drug effect decreased [Unknown]
  - Poor quality sleep [Unknown]
